FAERS Safety Report 7097266-9 (Version None)
Quarter: 2010Q4

REPORT INFORMATION
  Report Type: 
  Country: None (occurrence: None)
  Receive Date: 20101111
  Receipt Date: 20100510
  Transmission Date: 20110411
  Serious: No
  Sender: FDA-Public Use
  Company Number: US-KINGPHARMUSA00001-K201000597

PATIENT
  Sex: Female

DRUGS (2)
  1. LEVOXYL [Suspect]
     Dosage: 112 MCG, UNK
  2. IRON [Suspect]

REACTIONS (3)
  - DRUG INEFFECTIVE [None]
  - LABELLED DRUG-DRUG INTERACTION MEDICATION ERROR [None]
  - WEIGHT INCREASED [None]
